FAERS Safety Report 8012672-3 (Version None)
Quarter: 2011Q4

REPORT INFORMATION
  Report Type: 
  Country: None (occurrence: None)
  Receive Date: 20111229
  Receipt Date: 20111021
  Transmission Date: 20120403
  Serious: No
  Sender: FDA-Public Use
  Company Number: US-MYLANLABS-2011S1022115

PATIENT
  Age: 72 Year
  Sex: Female

DRUGS (1)
  1. TRAZODONE HCL [Suspect]
     Route: 048
     Dates: start: 20110701

REACTIONS (1)
  - THROAT IRRITATION [None]
